FAERS Safety Report 7303589-8 (Version None)
Quarter: 2011Q1

REPORT INFORMATION
  Report Type: 
  Country: None (occurrence: None)
  Receive Date: 20110221
  Receipt Date: 20110207
  Transmission Date: 20110831
  Serious: Yes (Other)
  Sender: FDA-Public Use
  Company Number: PHHY2011US10031

PATIENT
  Sex: Female

DRUGS (17)
  1. REVLIMID [Suspect]
     Indication: CHRONIC LYMPHOCYTIC LEUKAEMIA
     Dosage: 10 MG, DAILY
     Route: 048
     Dates: start: 20100901
  2. IMODIUM MULTI-SYMPTOM RELIEF [Concomitant]
     Dosage: 2 MG, UNK
     Route: 048
  3. JANUVIA [Concomitant]
     Dosage: 100 MG, UNK
     Route: 048
  4. COREG [Concomitant]
     Dosage: 25 MG, UNK
     Route: 048
  5. EXJADE [Suspect]
     Indication: IRON OVERLOAD
  6. NASCOBAL [Concomitant]
     Dosage: 500 UG, UNK
     Route: 045
  7. ZOLOFT [Concomitant]
     Dosage: 100 MG, DAILY
     Route: 048
  8. DIOVAN [Concomitant]
     Dosage: 320 MG, UNK
     Route: 048
  9. ASCORBIC ACID [Concomitant]
     Dosage: 1000 MG, UNK
     Route: 048
  10. ACTOS [Concomitant]
     Dosage: 45 MG, UNK
     Route: 048
  11. VITAMIN E [Concomitant]
     Dosage: 400 UNITS
     Route: 048
  12. EXJADE [Suspect]
     Indication: CHRONIC LYMPHOCYTIC LEUKAEMIA
  13. REVLIMID [Suspect]
     Dosage: 5 MG, DAILY
     Route: 048
     Dates: start: 20101101
  14. KLONOPIN [Concomitant]
     Dosage: 0.5 MG, UNK
     Route: 048
  15. LASIX [Concomitant]
     Dosage: 40 MG, UNK
     Route: 048
  16. KLOR-CON [Concomitant]
     Dosage: 20 MEQ, UNK
     Route: 048
  17. MULTI-VIT [Concomitant]
     Route: 048

REACTIONS (4)
  - WHITE BLOOD CELL COUNT DECREASED [None]
  - GASTROENTERITIS VIRAL [None]
  - PLATELET COUNT DECREASED [None]
  - DIARRHOEA [None]
